FAERS Safety Report 24017502 (Version 2)
Quarter: 2024Q3

REPORT INFORMATION
  Report Type: Spontaneous
  Country: US (occurrence: US)
  Receive Date: 20240627
  Receipt Date: 20240709
  Transmission Date: 20241017
  Serious: No
  Sender: ROCHE
  Company Number: US-ROCHE-10000006340

PATIENT
  Sex: Male

DRUGS (1)
  1. OCREVUS [Suspect]
     Active Substance: OCRELIZUMAB
     Indication: Primary progressive multiple sclerosis
     Route: 065

REACTIONS (7)
  - Gait disturbance [Unknown]
  - Asthenia [Unknown]
  - Dysstasia [Unknown]
  - Pain [Unknown]
  - Movement disorder [Unknown]
  - Movement disorder [Unknown]
  - Primary progressive multiple sclerosis [Unknown]
